FAERS Safety Report 15882902 (Version 1)
Quarter: 2019Q1

REPORT INFORMATION
  Report Type: Spontaneous
  Country: DE (occurrence: DE)
  Receive Date: 20190129
  Receipt Date: 20190129
  Transmission Date: 20190417
  Serious: Yes (Disabling)
  Sender: FDA-Public Use
  Company Number: DE-CURIUM-201800566

PATIENT
  Age: 38 Year
  Sex: Female

DRUGS (2)
  1. ULTRA-TECHNEKOW FM [Suspect]
     Active Substance: TECHNETIUM TC-99M SODIUM PERTECHNETATE
     Indication: POLYARTHRITIS
     Route: 042
     Dates: start: 20181205, end: 20181205
  2. TECHNESCAN HDP [Suspect]
     Active Substance: TECHNETIUM TC-99M OXIDRONATE
     Indication: POLYARTHRITIS
     Route: 042
     Dates: start: 20181205, end: 20181205

REACTIONS (3)
  - Hypoaesthesia [Recovered/Resolved with Sequelae]
  - Urticaria [Recovered/Resolved]
  - Pain in extremity [Recovering/Resolving]

NARRATIVE: CASE EVENT DATE: 20181205
